FAERS Safety Report 10314222 (Version 10)
Quarter: 2015Q1

REPORT INFORMATION
  Report Type: Report from Study
  Country: FR (occurrence: FR)
  Receive Date: 20140718
  Receipt Date: 20150225
  Transmission Date: 20150720
  Serious: Yes (Other)
  Sender: FDA-Public Use
  Company Number: FR-BAYER-2014-103486

PATIENT
  Age: 55 Year
  Sex: Female
  Weight: 61 kg

DRUGS (8)
  1. REGORAFENIB [Suspect]
     Active Substance: REGORAFENIB
     Indication: COLORECTAL CANCER
     Dosage: 40 X 4 = 160 MG
     Route: 048
     Dates: start: 20120906, end: 20121211
  2. REGORAFENIB [Suspect]
     Active Substance: REGORAFENIB
     Indication: COLORECTAL CANCER
     Dosage: 40 X 4 = 160 MG
     Route: 048
     Dates: start: 20140204, end: 20140418
  3. ARIXTRA [Concomitant]
     Active Substance: FONDAPARINUX SODIUM
     Indication: THROMBOPHLEBITIS
     Dosage: 7.5 MG TOTAL DAILY DOSE
     Route: 048
     Dates: start: 201105
  4. ATACAND [Concomitant]
     Active Substance: CANDESARTAN CILEXETIL
     Indication: HYPERTENSION
     Dosage: 8 MG TOTAL DAILY DOSE
     Route: 048
     Dates: start: 20130124, end: 20140521
  5. NEBIVOLOL [Concomitant]
     Active Substance: NEBIVOLOL
     Indication: HYPERTENSION
     Dosage: 5 MG TOTAL DAILY DOSE
     Route: 048
     Dates: start: 20121017
  6. REGORAFENIB [Suspect]
     Active Substance: REGORAFENIB
     Indication: COLORECTAL CANCER
     Dosage: 40 X 3 = 120 MG
     Route: 048
     Dates: start: 20121228, end: 20140127
  7. ONGLYZA [Concomitant]
     Active Substance: SAXAGLIPTIN HYDROCHLORIDE
     Indication: TYPE 2 DIABETES MELLITUS
     Dosage: 5 MG TOTAL DAILY DOSE
     Route: 048
  8. METFORMINE [Concomitant]
     Active Substance: METFORMIN HYDROCHLORIDE
     Indication: TYPE 2 DIABETES MELLITUS
     Dosage: UK
     Route: 048

REACTIONS (1)
  - Retinal vascular occlusion [Recovered/Resolved with Sequelae]

NARRATIVE: CASE EVENT DATE: 20140504
